FAERS Safety Report 8897442 (Version 1)
Quarter: 2012Q4

REPORT INFORMATION
  Report Type: 
  Country: US (occurrence: US)
  Receive Date: 20121108
  Receipt Date: 20121108
  Transmission Date: 20130627
  Serious: No
  Sender: FDA-Public Use
  Company Number: US-AMGEN-USASP2012027490

PATIENT
  Age: 52 Year
  Sex: Female
  Weight: 70.3 kg

DRUGS (10)
  1. ENBREL [Suspect]
     Indication: RHEUMATOID ARTHRITIS
     Dosage: 50 mg, qwk
     Route: 058
  2. ZOLOFT [Concomitant]
     Dosage: 25 mg, UNK
     Route: 048
  3. KLONOPIN [Concomitant]
     Dosage: 0.5 mg, UNK
     Route: 048
  4. FOLIC ACID [Concomitant]
     Dosage: UNK
     Route: 048
  5. PREDNISONE [Concomitant]
     Dosage: 10 mg, UNK
     Route: 048
  6. METHOTREXATE [Concomitant]
     Dosage: 2.5 mg, UNK
     Route: 048
  7. MULTI TABS [Concomitant]
     Route: 048
  8. CALCIUM W/VITAMIN D                /00188401/ [Concomitant]
     Dosage: 500 mg, UNK
     Route: 048
  9. FLAXSEED OIL [Concomitant]
     Route: 048
  10. FISH OIL [Concomitant]
     Route: 048

REACTIONS (1)
  - Nasopharyngitis [Recovered/Resolved]
